FAERS Safety Report 15752450 (Version 4)
Quarter: 2019Q1

REPORT INFORMATION
  Report Type: Spontaneous
  Country: JP (occurrence: JP)
  Receive Date: 20181221
  Receipt Date: 20190308
  Transmission Date: 20190417
  Serious: Yes (Other)
  Sender: FDA-Public Use
  Company Number: JP-009507513-1812JPN002555J

PATIENT
  Age: 8 Decade
  Sex: Female

DRUGS (3)
  1. CUBICIN [Suspect]
     Active Substance: DAPTOMYCIN
     Indication: ARTHRITIS BACTERIAL
     Dosage: UNK
     Route: 041
     Dates: start: 20181214, end: 20181214
  2. LOXONIN [Suspect]
     Active Substance: LOXOPROFEN SODIUM
     Dosage: UNK
     Route: 048
     Dates: end: 20181214
  3. SIVEXTRO [Suspect]
     Active Substance: TEDIZOLID PHOSPHATE
     Indication: ARTHRITIS BACTERIAL
     Dosage: 200 MILLIGRAM, QD
     Route: 048
     Dates: start: 201901

REACTIONS (5)
  - White blood cell disorder [Recovered/Resolved]
  - Platelet count decreased [Recovered/Resolved]
  - Platelet count decreased [Recovered/Resolved]
  - Large intestinal ulcer [Recovered/Resolved]
  - Shock symptom [Unknown]

NARRATIVE: CASE EVENT DATE: 20181214
